FAERS Safety Report 5964439-5 (Version None)
Quarter: 2008Q4

REPORT INFORMATION
  Report Type: 
  Country: None (occurrence: None)
  Receive Date: 20081124
  Receipt Date: 20081124
  Transmission Date: 20090506
  Serious: Yes (Life-Threatening, Hospitalization, Other)
  Sender: FDA-Public Use
  Company Number: None

PATIENT
  Age: 32 Year
  Sex: Male
  Weight: 129.2752 kg

DRUGS (3)
  1. ZOCOR [Suspect]
     Indication: BLOOD CHOLESTEROL INCREASED
     Dosage: ONE TABLET ONCE A DAY PO
     Route: 048
     Dates: start: 20070315, end: 20080723
  2. ANTIFUNGAL MEDICATION [Concomitant]
  3. STATIN [Concomitant]

REACTIONS (13)
  - APHASIA [None]
  - ARTHRALGIA [None]
  - BLOOD PRESSURE FLUCTUATION [None]
  - CONVULSION [None]
  - FEELING DRUNK [None]
  - HEART RATE INCREASED [None]
  - IMMOBILE [None]
  - LETHARGY [None]
  - LOSS OF CONSCIOUSNESS [None]
  - MEDICATION ERROR [None]
  - PAIN IN EXTREMITY [None]
  - RHABDOMYOLYSIS [None]
  - WEIGHT INCREASED [None]
